FAERS Safety Report 9550450 (Version 1)
Quarter: 2013Q3

REPORT INFORMATION
  Report Type: Spontaneous
  Country: US (occurrence: US)
  Receive Date: 20130924
  Receipt Date: 20130924
  Transmission Date: 20140515
  Serious: No
  Sender: FDA-Public Use
  Company Number: US-SANOFI-AVENTIS-2013SA078516

PATIENT
  Age: 55 Year
  Sex: Female

DRUGS (3)
  1. AUBAGIO [Suspect]
     Indication: MULTIPLE SCLEROSIS
     Route: 048
     Dates: start: 20130301, end: 20130617
  2. AMPYRA [Suspect]
     Route: 065
     Dates: start: 20120430, end: 20130617
  3. ZOLOFT [Suspect]
     Indication: DEPRESSION
     Route: 048

REACTIONS (1)
  - Arthralgia [Unknown]
